FAERS Safety Report 9468321 (Version 1)
Quarter: 2013Q3

REPORT INFORMATION
  Report Type: Report from Study
  Country: US (occurrence: US)
  Receive Date: 20130821
  Receipt Date: 20130821
  Transmission Date: 20140515
  Serious: Yes (Other)
  Sender: FDA-Public Use
  Company Number: US-JNJFOC-20130807117

PATIENT
  Age: 75 Year
  Sex: Female

DRUGS (1)
  1. REMICADE [Suspect]
     Indication: RHEUMATOID ARTHRITIS
     Route: 042

REACTIONS (5)
  - Adverse event [Unknown]
  - Inflammation [Recovering/Resolving]
  - Infection [Recovering/Resolving]
  - Local swelling [Recovered/Resolved]
  - Drug ineffective [Not Recovered/Not Resolved]
